FAERS Safety Report 9498742 (Version 4)
Quarter: 2014Q2

REPORT INFORMATION
  Report Type: Spontaneous
  Country: CA (occurrence: CA)
  Receive Date: 20130904
  Receipt Date: 20140630
  Transmission Date: 20141212
  Serious: Yes (Hospitalization, Other)
  Sender: FDA-Public Use
  Company Number: CA-BAXTER-2013BAX033034

PATIENT
  Age: 64 Year
  Sex: Male

DRUGS (5)
  1. DIANEAL PD4 SOLUTION WITH 1.5% DEXTROSE AND 2.5 MEQ/L CALCIUM [Suspect]
     Indication: RENAL FAILURE
     Route: 033
  2. DIANEAL PD4 SOLUTION WITH 2.5% DEXTROSE AND 2.5 MEQ/L CALCIUM [Suspect]
     Indication: RENAL FAILURE
     Route: 033
  3. DIANEAL PD4 SOLUTION WITH 2.5% DEXTROSE AND 2.5 MEQ/L CALCIUM [Suspect]
     Route: 033
  4. DIANEAL PD4 SOLUTION WITH 4.25% DEXTROSE AND 2.5 MEQ/L CALCIUM [Suspect]
     Indication: RENAL FAILURE
     Route: 033
  5. EXTRANEAL [Suspect]
     Indication: RENAL FAILURE
     Route: 033

REACTIONS (7)
  - Diabetic foot [Recovering/Resolving]
  - Impaired healing [Recovering/Resolving]
  - Condition aggravated [Unknown]
  - Diabetes mellitus [Unknown]
  - Infected skin ulcer [Recovered/Resolved]
  - Pyrexia [Recovering/Resolving]
  - Weight decreased [Recovering/Resolving]
